FAERS Safety Report 6937844-8 (Version None)
Quarter: 2010Q3

REPORT INFORMATION
  Report Type: 
  Country: None (occurrence: None)
  Receive Date: 20100824
  Receipt Date: 20100816
  Transmission Date: 20110219
  Serious: Yes (Hospitalization)
  Sender: FDA-Public Use
  Company Number: CA-BIOGENIDEC-2010BI025294

PATIENT
  Age: 44 Year
  Sex: Female

DRUGS (1)
  1. TYSABRI [Suspect]
     Indication: MULTIPLE SCLEROSIS
     Route: 042
     Dates: start: 20071213

REACTIONS (5)
  - ABDOMINAL DISTENSION [None]
  - ABNORMAL BEHAVIOUR [None]
  - FATIGUE [None]
  - HEADACHE [None]
  - POST-TRAUMATIC STRESS DISORDER [None]
